FAERS Safety Report 7050483-6 (Version None)
Quarter: 2010Q4

REPORT INFORMATION
  Report Type: 
  Country: None (occurrence: None)
  Receive Date: 20101018
  Receipt Date: 20101005
  Transmission Date: 20110411
  Serious: Yes (Hospitalization)
  Sender: FDA-Public Use
  Company Number: FR-ELI_LILLY_AND_COMPANY-FR201010000792

PATIENT
  Sex: Female

DRUGS (13)
  1. ZYPREXA [Suspect]
     Indication: BIPOLAR DISORDER
     Dosage: 5 MG, DAILY (1/D)
     Route: 048
  2. TERALITHE [Concomitant]
     Indication: BIPOLAR DISORDER
     Dosage: 400 MG, DAILY (1/D)
     Route: 048
     Dates: start: 19900101, end: 20100831
  3. ANAFRANIL [Concomitant]
     Indication: DEPRESSION
     Dosage: 20 MG, DAILY (1/D)
     Route: 048
     Dates: end: 20100830
  4. LASIX [Concomitant]
     Dosage: 40 MG, UNK
  5. LASIX [Concomitant]
     Dosage: 20 MG, MORNING
  6. KREDEX [Concomitant]
     Dosage: 1 TAB, UNK
  7. PERINDOPRIL ERBUMINE [Concomitant]
     Dosage: 5 MG, DAILY (1/D)
  8. VASTEN [Concomitant]
     Dosage: 20 MG, DAILY (1/D)
  9. LEVOTHYROXINE SODIUM [Concomitant]
     Dosage: 100 MG, DAILY (1/D)
  10. SEROPLEX [Concomitant]
     Indication: DEPRESSION
     Dosage: 10 MG, DAILY (1/D)
  11. ATARAX [Concomitant]
     Dosage: 50 MG, DAILY (1/D)
  12. LITHIUM CARBONATE [Concomitant]
  13. TRICYCLIC ANTIDEPRESSANTS [Concomitant]

REACTIONS (2)
  - CARDIAC FAILURE CONGESTIVE [None]
  - CONGESTIVE CARDIOMYOPATHY [None]
